FAERS Safety Report 9485377 (Version 2)
Quarter: 2014Q1

REPORT INFORMATION
  Report Type: Spontaneous
  Country: FR (occurrence: FR)
  Receive Date: 20130828
  Receipt Date: 20140312
  Transmission Date: 20141002
  Serious: Yes (Other)
  Sender: FDA-Public Use
  Company Number: FR-JNJFOC-20130812485

PATIENT
  Age: 12 Year
  Sex: Male

DRUGS (9)
  1. PARACETAMOL [Suspect]
     Indication: JUVENILE IDIOPATHIC ARTHRITIS
     Route: 048
  2. CONTRAMAL [Suspect]
     Indication: JUVENILE IDIOPATHIC ARTHRITIS
     Route: 048
  3. APRANAX [Suspect]
     Indication: JUVENILE IDIOPATHIC ARTHRITIS
     Route: 048
     Dates: end: 20130313
  4. INEXIUM [Suspect]
     Indication: JUVENILE IDIOPATHIC ARTHRITIS
     Route: 048
  5. ROACTEMRA [Suspect]
     Indication: JUVENILE IDIOPATHIC ARTHRITIS
     Route: 041
     Dates: start: 20130113, end: 20130113
  6. ROACTEMRA [Suspect]
     Indication: JUVENILE IDIOPATHIC ARTHRITIS
     Route: 041
     Dates: start: 200909
  7. ROACTEMRA [Suspect]
     Indication: JUVENILE IDIOPATHIC ARTHRITIS
     Route: 041
     Dates: start: 20130109, end: 20130109
  8. ROACTEMRA [Suspect]
     Indication: JUVENILE IDIOPATHIC ARTHRITIS
     Route: 041
     Dates: start: 20130313, end: 20130313
  9. CORTANCYL [Suspect]
     Indication: JUVENILE IDIOPATHIC ARTHRITIS
     Route: 048

REACTIONS (2)
  - Rectal haemorrhage [Recovered/Resolved]
  - Inflammatory bowel disease [Not Recovered/Not Resolved]
